FAERS Safety Report 5270322-3 (Version None)
Quarter: 2007Q1

REPORT INFORMATION
  Report Type: 
  Country: None (occurrence: None)
  Receive Date: 20070320
  Receipt Date: 20070310
  Transmission Date: 20070707
  Serious: Yes (Other)
  Sender: FDA-Public Use
  Company Number: US-PFIZER INC-2007018665

PATIENT
  Sex: Female

DRUGS (1)
  1. XANAX [Suspect]

REACTIONS (2)
  - BLISTER [None]
  - SKIN REACTION [None]
